FAERS Safety Report 9928316 (Version 1)
Quarter: 2014Q1

REPORT INFORMATION
  Report Type: Spontaneous
  Country: US (occurrence: US)
  Receive Date: 20140227
  Receipt Date: 20140227
  Transmission Date: 20141002
  Serious: No
  Sender: FDA-Public Use
  Company Number: US-BAYER-2014-030640

PATIENT
  Age: 67 Year
  Sex: Male
  Weight: 80.73 kg

DRUGS (2)
  1. ALEVE CAPLET [Suspect]
     Indication: ARTHRITIS
     Dosage: 1 DF, UNK
     Route: 048
     Dates: start: 201312, end: 20140225
  2. ALEVE CAPLET [Suspect]
     Indication: ARTHRITIS
     Dosage: 2 DF, QD
     Route: 048

REACTIONS (2)
  - Constipation [Not Recovered/Not Resolved]
  - Incorrect drug administration duration [None]
